FAERS Safety Report 25371143 (Version 1)
Quarter: 2025Q2

REPORT INFORMATION
  Report Type: Report from Study
  Country: DE (occurrence: DE)
  Receive Date: 20250529
  Receipt Date: 20250529
  Transmission Date: 20250716
  Serious: Yes (Other)
  Sender: ABBVIE
  Company Number: DE-ABBVIE-6294299

PATIENT
  Age: 62 Year
  Sex: Male
  Weight: 95 kg

DRUGS (1)
  1. SKYRIZI [Suspect]
     Active Substance: RISANKIZUMAB-RZAA
     Indication: Product used for unknown indication
     Route: 058
     Dates: start: 20220408, end: 202307

REACTIONS (18)
  - Urosepsis [Recovered/Resolved]
  - Oedema peripheral [Recovered/Resolved]
  - Pyrexia [Recovered/Resolved]
  - Cystitis bacterial [Recovered/Resolved]
  - Pseudomonas test positive [Recovered/Resolved]
  - Transaminases increased [Recovered/Resolved]
  - Haematuria [Recovered/Resolved]
  - Nephrolithiasis [Unknown]
  - HIV infection [Unknown]
  - Type 2 diabetes mellitus [Unknown]
  - Psoriasis [Unknown]
  - Aortic aneurysm [Unknown]
  - Hypertension [Unknown]
  - Thyroidectomy [Recovered/Resolved]
  - Cyst rupture [Unknown]
  - Pancreatic pseudocyst [Recovered/Resolved]
  - Coronary artery stenosis [Recovered/Resolved]
  - Hypothyroidism [Not Recovered/Not Resolved]

NARRATIVE: CASE EVENT DATE: 20230101
